FAERS Safety Report 5009721-3 (Version None)
Quarter: 2006Q2

REPORT INFORMATION
  Report Type: 
  Country: None (occurrence: None)
  Receive Date: 20060522
  Receipt Date: 20060510
  Transmission Date: 20061013
  Serious: Yes (Hospitalization)
  Sender: FDA-Public Use
  Company Number: GXBR2006US01105

PATIENT
  Age: 84 Year
  Sex: Male
  Weight: 72.6 kg

DRUGS (6)
  1. AMANTADINE HCL CAPSULES USP (NGX)(AMANTINE) CAPSULE [Suspect]
     Indication: PARKINSON'S DISEASE
     Dosage: 100 MG, BID, ORAL
     Route: 048
     Dates: end: 20060301
  2. PROPRANOLOL HCL [Suspect]
     Indication: HYPERTENSION
  3. AMBIEN [Suspect]
     Dosage: 5 MG, QHS, ORAL
     Route: 048
  4. ATIVAN [Suspect]
  5. SINEMET [Concomitant]
  6. ASPIRIN [Concomitant]

REACTIONS (1)
  - CEREBROVASCULAR ACCIDENT [None]
